FAERS Safety Report 18145261 (Version 1)
Quarter: 2020Q3

REPORT INFORMATION
  Report Type: Spontaneous
  Country: US (occurrence: US)
  Receive Date: 20200813
  Receipt Date: 20200813
  Transmission Date: 20201103
  Serious: No
  Sender: FDA-Public Use
  Company Number: None

PATIENT
  Age: 69 Year
  Sex: Female
  Weight: 76.97 kg

DRUGS (14)
  1. ADVAIR DISKUS [Concomitant]
     Active Substance: FLUTICASONE PROPIONATE\SALMETEROL XINAFOATE
  2. ALBUTEROL. [Concomitant]
     Active Substance: ALBUTEROL
  3. ESOMEPRAZOLE. [Concomitant]
     Active Substance: ESOMEPRAZOLE MAGNESIUM
  4. GABAPENTIN. [Concomitant]
     Active Substance: GABAPENTIN
  5. OXYCODONE?ACETAMINOPHEN [Concomitant]
     Active Substance: ACETAMINOPHEN\OXYCODONE HYDROCHLORIDE
  6. FOLIC ACID. [Concomitant]
     Active Substance: FOLIC ACID
  7. SINGULAIR [Concomitant]
     Active Substance: MONTELUKAST SODIUM
  8. CAPECITABINE. [Suspect]
     Active Substance: CAPECITABINE
     Indication: SQUAMOUS CELL CARCINOMA OF SKIN
     Route: 048
     Dates: start: 20200624, end: 20200813
  9. BUPROPION. [Concomitant]
     Active Substance: BUPROPION
  10. IPRATROPIUM [Concomitant]
     Active Substance: IPRATROPIUM
  11. INCRUSE ELLIPTA [Concomitant]
     Active Substance: UMECLIDINIUM BROMIDE
  12. QUETIAPINE. [Concomitant]
     Active Substance: QUETIAPINE
  13. TYLENOL [Concomitant]
     Active Substance: ACETAMINOPHEN
  14. VENTOLIN HFA [Concomitant]
     Active Substance: ALBUTEROL SULFATE

REACTIONS (1)
  - Palliative care [None]

NARRATIVE: CASE EVENT DATE: 20200813
